FAERS Safety Report 25596277 (Version 1)
Quarter: 2025Q3

REPORT INFORMATION
  Report Type: Spontaneous
  Country: US (occurrence: US)
  Receive Date: 20250723
  Receipt Date: 20250723
  Transmission Date: 20251020
  Serious: Yes (Other)
  Sender: PFIZER
  Company Number: US-PFIZER INC-2015282051

PATIENT
  Age: 29 Year
  Sex: Male

DRUGS (1)
  1. PROPOFOL [Suspect]
     Active Substance: PROPOFOL
     Indication: Sedation

REACTIONS (2)
  - Haemoglobin increased [Recovering/Resolving]
  - Hypertriglyceridaemia [Recovering/Resolving]
